FAERS Safety Report 21827200 (Version 1)
Quarter: 2023Q1

REPORT INFORMATION
  Report Type: Spontaneous
  Country: JP (occurrence: JP)
  Receive Date: 20230106
  Receipt Date: 20230106
  Transmission Date: 20230418
  Serious: Yes (Hospitalization)
  Sender: FDA-Public Use
  Company Number: JP-STRIDES ARCOLAB LIMITED-2023SP000310

PATIENT
  Age: 60 Year
  Sex: Female

DRUGS (2)
  1. POLYETHYLENE GLYCOL 3350 [Suspect]
     Active Substance: POLYETHYLENE GLYCOL 3350
     Indication: Bowel preparation
     Dosage: 1.5 LITER (POLYETHYLENE GLYCOL ELECTROLYTE SOLUTION)
     Route: 065
  2. POLYETHYLENE GLYCOL 3350 [Suspect]
     Active Substance: POLYETHYLENE GLYCOL 3350
     Indication: Colonoscopy

REACTIONS (3)
  - Faecaloma [Recovered/Resolved]
  - Large intestinal obstruction [Recovered/Resolved]
  - Ileus [Recovered/Resolved]
